FAERS Safety Report 17207342 (Version 1)
Quarter: 2019Q4

REPORT INFORMATION
  Report Type: Spontaneous
  Country: US (occurrence: US)
  Receive Date: 20191205
  Receipt Date: 20191205
  Transmission Date: 20200122
  Serious: Yes (Hospitalization)
  Sender: FDA-Public Use
  Company Number: None

PATIENT
  Age: 80 Year
  Sex: Female

DRUGS (17)
  1. SILDENAFIL 20 MG TAB [Suspect]
     Active Substance: SILDENAFIL
     Dosage: 20 MG 3 BY MOUTH DAILY
     Route: 048
     Dates: start: 20190706
  2. CALCIUM [Concomitant]
     Active Substance: CALCIUM
  3. GABAPENTIN. [Concomitant]
     Active Substance: GABAPENTIN
  4. MYRBETRIQ [Concomitant]
     Active Substance: MIRABEGRON
  5. OMEPRAZOLE. [Concomitant]
     Active Substance: OMEPRAZOLE
  6. PRAVASTATIN. [Concomitant]
     Active Substance: PRAVASTATIN
  7. RANITIDINE. [Concomitant]
     Active Substance: RANITIDINE
  8. ASPIRIN. [Concomitant]
     Active Substance: ASPIRIN
  9. PRESERVISION [Concomitant]
     Active Substance: MINERALS\VITAMINS
  10. DULOXETINE. [Concomitant]
     Active Substance: DULOXETINE
  11. FLUTICASONE. [Concomitant]
     Active Substance: FLUTICASONE
  12. LARTADINE [Concomitant]
  13. MONTELUKAST [Concomitant]
     Active Substance: MONTELUKAST SODIUM
  14. FORTEO [Suspect]
     Active Substance: TERIPARATIDE
     Indication: OSTEOPOROSIS
     Dosage: 600 MCG/2.4ML DAILY UNDER SKIN
     Route: 058
     Dates: start: 20190505
  15. AMOXICILLIN. [Concomitant]
     Active Substance: AMOXICILLIN
  16. VITAMIN D3 [Concomitant]
     Active Substance: CHOLECALCIFEROL
  17. ALLOPURINOL. [Concomitant]
     Active Substance: ALLOPURINOL

REACTIONS (3)
  - Fall [None]
  - Head injury [None]
  - Eye contusion [None]

NARRATIVE: CASE EVENT DATE: 20191126
